FAERS Safety Report 17144524 (Version 4)
Quarter: 2019Q4

REPORT INFORMATION
  Report Type: Report from Study
  Country: MX (occurrence: MX)
  Receive Date: 20191212
  Receipt Date: 20191231
  Transmission Date: 20200122
  Serious: Yes (Hospitalization, Other)
  Sender: FDA-Public Use
  Company Number: MX-JNJFOC-20191205718

PATIENT
  Age: 60 Year
  Sex: Female

DRUGS (3)
  1. ERYTHROPOIETIN [Concomitant]
     Active Substance: ERYTHROPOIETIN
     Indication: PRODUCT USED FOR UNKNOWN INDICATION
     Route: 065
  2. DARZALEX [Suspect]
     Active Substance: DARATUMUMAB
     Indication: PLASMA CELL MYELOMA
     Dosage: LATEST DOSE: 12-DEC-2019
  3. FLEBOCORTID [Suspect]
     Active Substance: HYDROCORTISONE SODIUM SUCCINATE
     Indication: PLASMA CELL MYELOMA
     Route: 065

REACTIONS (11)
  - Chills [Recovered/Resolved]
  - Haemoglobin decreased [Unknown]
  - Headache [Unknown]
  - Pain [Unknown]
  - Neuropathy peripheral [Recovering/Resolving]
  - Nausea [Recovered/Resolved]
  - Discomfort [Recovering/Resolving]
  - Infusion related reaction [Unknown]
  - Hypotension [Recovered/Resolved]
  - Infection [Unknown]
  - White blood cell disorder [Unknown]

NARRATIVE: CASE EVENT DATE: 20191129
